FAERS Safety Report 6694399-3 (Version None)
Quarter: 2010Q2

REPORT INFORMATION
  Report Type: 
  Country: None (occurrence: None)
  Receive Date: 20100423
  Receipt Date: 20100413
  Transmission Date: 20101027
  Serious: Yes (Other)
  Sender: FDA-Public Use
  Company Number: JP-JNJFOC-20100403283

PATIENT
  Age: 72 Year
  Sex: Male

DRUGS (3)
  1. DUROTEP MT PATCH [Suspect]
     Indication: CANCER PAIN
     Route: 062
  2. DOMPERDIDONE [Concomitant]
     Route: 065
  3. LAXOBERON [Concomitant]
     Route: 048

REACTIONS (1)
  - PYREXIA [None]
